FAERS Safety Report 26115713 (Version 1)
Quarter: 2025Q4

REPORT INFORMATION
  Report Type: Spontaneous
  Country: GB (occurrence: GB)
  Receive Date: 20251203
  Receipt Date: 20251203
  Transmission Date: 20260118
  Serious: Yes (Hospitalization, Other)
  Sender: HIKMA
  Company Number: GB-MLMSERVICE-20251114-PI709877-00123-2

PATIENT
  Age: 62 Year
  Sex: Female

DRUGS (10)
  1. DOCETAXEL [Suspect]
     Active Substance: DOCETAXEL
     Dosage: 132 MILLIGRAM; 100MG/M2 GIVEN AS STANDARD DOSE FOR PATIENTS WITH PERFORMANCE STATUS 0-1 AS PER HOSPI
     Route: 065
     Dates: start: 20250828, end: 2025
  2. DOCETAXEL [Suspect]
     Active Substance: DOCETAXEL
     Indication: Metastases to bone
     Dosage: 148 MILLIGRAM; 100MG/M2 GIVEN AS STANDARD DOSE FOR PATIENTS WITH PERFORMANCE STATUS 0-1 AS PER HOSPI
     Route: 065
     Dates: start: 20250807, end: 2025
  3. DOCETAXEL [Suspect]
     Active Substance: DOCETAXEL
     Indication: Metastases to lung
     Dosage: 148 MILLIGRAM; 100MG/M2 GIVEN AS STANDARD DOSE FOR PATIENTS WITH PERFORMANCE STATUS 0-1 AS PER HOSPI
     Route: 065
     Dates: start: 20250710, end: 2025
  4. DOCETAXEL [Suspect]
     Active Substance: DOCETAXEL
     Indication: HER2 positive breast cancer
     Dosage: 148 MILLIGRAM; 75 MG/M2 GIVEN AS STANDARD LOADING DOSE AS PER HOSPITAL TRUST PROTOCOL FOR CYCLE 1 WI
     Route: 065
     Dates: start: 20250521, end: 2025
  5. DOCETAXEL [Suspect]
     Active Substance: DOCETAXEL
     Indication: Metastases to liver
     Dosage: 180 MILLIGRAM; 100MG/M2 GIVEN AS STANDARD DOSE FOR PATIENTS WITH PERFORMANCE STATUS 0-1 AS PER HOSPI
     Route: 065
     Dates: start: 20250611, end: 2025
  6. PHESGO [Suspect]
     Active Substance: HYALURONIDASE-ZZXF\PERTUZUMAB\TRASTUZUMAB
     Dosage: 1200 MILLIGRAM; STANDARD LOADING DOSE FOR CYCLE 1 AS PER HOSPITAL PROTOCOL WITH 1.83M2 BODY SURFACE
     Route: 065
     Dates: start: 20250828, end: 2025
  7. PHESGO [Suspect]
     Active Substance: HYALURONIDASE-ZZXF\PERTUZUMAB\TRASTUZUMAB
     Indication: Metastases to bone
     Dosage: 1200 MILLIGRAM; STANDARD LOADING DOSE FOR CYCLE 1 AS PER HOSPITAL PROTOCOL WITH 1.86 M2 BODY SURFACE
     Route: 065
     Dates: start: 20250807, end: 2025
  8. PHESGO [Suspect]
     Active Substance: HYALURONIDASE-ZZXF\PERTUZUMAB\TRASTUZUMAB
     Indication: Metastases to lung
     Dosage: 1200 MILLIGRAM; STANDARD LOADING DOSE FOR CYCLE 1 AS PER HOSPITAL PROTOCOL WITH 1.90 M2 BODY SURFACE
     Route: 065
     Dates: start: 20250710, end: 2025
  9. PHESGO [Suspect]
     Active Substance: HYALURONIDASE-ZZXF\PERTUZUMAB\TRASTUZUMAB
     Indication: Metastases to liver
     Dosage: 1200 MILLIGRAM; STANDARD LOADING DOSE FOR CYCLE 1 AS PER HOSPITAL PROTOCOL WITH 1.99 M2 BODY SURFACE
     Route: 065
     Dates: start: 20250611, end: 2025
  10. PHESGO [Suspect]
     Active Substance: HYALURONIDASE-ZZXF\PERTUZUMAB\TRASTUZUMAB
     Indication: HER2 positive breast cancer
     Dosage: 1800 MILLIGRAM; STANDARD LOADING DOSE FOR CYCLE 1 AS PER HOSPITAL PROTOCOL WITH 1.92 M2 BODY SURFACE
     Route: 065
     Dates: start: 20250521, end: 2025

REACTIONS (7)
  - Erythema multiforme [Unknown]
  - Hypoalbuminaemia [Unknown]
  - Condition aggravated [Unknown]
  - Malnutrition [Unknown]
  - Weight decreased [Unknown]
  - Decreased appetite [Unknown]
  - Mucosal inflammation [Unknown]

NARRATIVE: CASE EVENT DATE: 20250101
